FAERS Safety Report 6064678-1 (Version None)
Quarter: 2009Q1

REPORT INFORMATION
  Report Type: 
  Country: None (occurrence: None)
  Receive Date: 20090204
  Receipt Date: 20080606
  Transmission Date: 20090719
  Serious: No
  Sender: FDA-Public Use
  Company Number: A0726578A

PATIENT
  Age: 85 Year
  Sex: Female
  Weight: 48.3 kg

DRUGS (3)
  1. ARIXTRA [Suspect]
     Dosage: 5MG PER DAY
     Route: 058
     Dates: start: 20080201, end: 20080401
  2. TAXOL [Concomitant]
  3. CARBOPLATIN [Concomitant]

REACTIONS (2)
  - RASH [None]
  - SKIN DISCOLOURATION [None]
